FAERS Safety Report 4485057-4 (Version None)
Quarter: 2004Q4

REPORT INFORMATION
  Report Type: 
  Country: None (occurrence: None)
  Receive Date: 20041022
  Receipt Date: 20041022
  Transmission Date: 20050328
  Serious: Yes (Hospitalization)
  Sender: FDA-Public Use
  Company Number: None

PATIENT
  Age: 42 Year
  Sex: Male
  Weight: 111 kg

DRUGS (4)
  1. LEVAQUIN [Suspect]
     Indication: PROSTATITIS
     Dosage: 500 MG X1 INTRAVENOU
     Route: 042
     Dates: start: 20041007, end: 20041007
  2. LEVAQUIN [Suspect]
     Indication: URINARY TRACT INFECTION
     Dosage: 500 MG X1 INTRAVENOU
     Route: 042
     Dates: start: 20041007, end: 20041007
  3. UNASYN [Suspect]
     Indication: PROSTATITIS
     Dosage: 3GM X1 INTRAVENOU
     Route: 042
     Dates: start: 20041007, end: 20041007
  4. UNASYN [Suspect]
     Indication: URINARY TRACT INFECTION
     Dosage: 3GM X1 INTRAVENOU
     Route: 042
     Dates: start: 20041007, end: 20041007

REACTIONS (2)
  - FEELING HOT [None]
  - OROPHARYNGEAL SWELLING [None]
